FAERS Safety Report 12969288 (Version 1)
Quarter: 2016Q4

REPORT INFORMATION
  Report Type: Spontaneous
  Country: BG (occurrence: BG)
  Receive Date: 20161123
  Receipt Date: 20161123
  Transmission Date: 20170207
  Serious: Yes (Life-Threatening, Hospitalization, Other)
  Sender: FDA-Public Use
  Company Number: BG-TEVA-712161ISR

PATIENT
  Age: 79 Year
  Sex: Female

DRUGS (2)
  1. SPERIDAN 2 MG [Suspect]
     Active Substance: RISPERIDONE
     Indication: SCHIZOPHRENIFORM DISORDER
  2. STRESAM 50 MG [Suspect]
     Active Substance: ETIFOXINE
     Indication: SCHIZOPHRENIFORM DISORDER
     Route: 048

REACTIONS (10)
  - Dizziness [Recovered/Resolved]
  - Toxicity to various agents [Recovered/Resolved]
  - Bradyphrenia [Recovered/Resolved]
  - Suicide attempt [Recovered/Resolved]
  - Somnolence [Recovered/Resolved]
  - Intentional overdose [None]
  - Dysstasia [Recovered/Resolved]
  - Vertigo [Recovered/Resolved]
  - Slow speech [Recovered/Resolved]
  - Toxic encephalopathy [Recovered/Resolved]
